FAERS Safety Report 12254619 (Version 1)
Quarter: 2016Q2

REPORT INFORMATION
  Report Type: Spontaneous
  Country: US (occurrence: US)
  Receive Date: 20160411
  Receipt Date: 20160411
  Transmission Date: 20160815
  Serious: No
  Sender: FDA-Public Use
  Company Number: US-SA-2015SA036162

PATIENT
  Age: 68 Year
  Sex: Male

DRUGS (2)
  1. ALLEGRA-D [Suspect]
     Active Substance: FEXOFENADINE\PSEUDOEPHEDRINE
     Indication: MULTIPLE ALLERGIES
     Dosage: DOSE:60 MG FEX/120 MG PSE?START DATE: LAST WEEK
     Route: 048
  2. ALLEGRA-D [Suspect]
     Active Substance: FEXOFENADINE\PSEUDOEPHEDRINE
     Indication: PARANASAL SINUS DISCOMFORT
     Dosage: DOSE:60 MG FEX/120 MG PSE?START DATE: LAST WEEK
     Route: 048

REACTIONS (2)
  - Musculoskeletal discomfort [Unknown]
  - Laryngitis [Unknown]
